FAERS Safety Report 10688197 (Version 1)
Quarter: 2014Q4

REPORT INFORMATION
  Report Type: Spontaneous
  Country: PL (occurrence: None)
  Receive Date: 20141231
  Receipt Date: 20141231
  Transmission Date: 20150529
  Serious: Yes (Life-Threatening)
  Sender: FDA-Public Use
  Company Number: 20142660

PATIENT
  Sex: Male
  Weight: 62 kg

DRUGS (3)
  1. ENCORTON (PREDNISONE) [Concomitant]
  2. METHOTREXATE (METHOTREXATE) [Suspect]
     Active Substance: METHOTREXATE
     Indication: ARTHRITIS
     Dosage: 1 X 15 MILLIGRAM IN 1 WEEK
     Route: 048
     Dates: start: 201407, end: 20140807
  3. KALIPOZ (POTASSIUM CHLORIDE) [Concomitant]

REACTIONS (5)
  - Leukopenia [None]
  - Bronchitis [None]
  - Hypoplastic anaemia [None]
  - Haemorrhagic diathesis [None]
  - Thrombocytopenia [None]

NARRATIVE: CASE EVENT DATE: 20140808
